FAERS Safety Report 16274410 (Version 3)
Quarter: 2022Q4

REPORT INFORMATION
  Report Type: Spontaneous
  Country: US (occurrence: US)
  Receive Date: 20190506
  Receipt Date: 20221220
  Transmission Date: 20230112
  Serious: No
  Sender: FDA-Public Use
  Company Number: US-TEVA-2019-US-1039592

PATIENT
  Age: 42 Year
  Sex: Female
  Weight: 83 kg

DRUGS (13)
  1. AUSTEDO [Interacting]
     Active Substance: DEUTETRABENAZINE
     Indication: Tardive dyskinesia
     Dosage: NEW TITRATING PATIENT
     Route: 065
     Dates: start: 201902
  2. AUSTEDO [Interacting]
     Active Substance: DEUTETRABENAZINE
     Dosage: 24 MILLIGRAM DAILY;
     Route: 065
     Dates: start: 201903
  3. PAROXETINE [Interacting]
     Active Substance: PAROXETINE
     Indication: Product used for unknown indication
     Route: 065
     Dates: start: 20190409, end: 20190409
  4. FLEXERIL [Interacting]
     Active Substance: CYCLOBENZAPRINE HYDROCHLORIDE
     Indication: Product used for unknown indication
     Dosage: STOPPED TREATMENT
     Route: 065
  5. PROZAC [Concomitant]
     Active Substance: FLUOXETINE HYDROCHLORIDE
     Indication: Product used for unknown indication
  6. LEVOTHYROXINE [Concomitant]
     Active Substance: LEVOTHYROXINE
     Indication: Product used for unknown indication
  7. CALCIUM [Concomitant]
     Active Substance: CALCIUM
     Indication: Product used for unknown indication
  8. UNSPECIFIED INGREDIENT [Concomitant]
     Active Substance: UNSPECIFIED INGREDIENT
     Indication: Product used for unknown indication
  9. VITAMIN D [Concomitant]
     Active Substance: VITAMIN D NOS
     Indication: Product used for unknown indication
  10. MELATONIN [Concomitant]
     Active Substance: MELATONIN
     Indication: Sleep disorder
  11. HYDROXYZINE [Concomitant]
     Active Substance: HYDROXYZINE HYDROCHLORIDE
     Indication: Anxiety
  12. LAMOTRIGINE [Concomitant]
     Active Substance: LAMOTRIGINE
     Indication: Product used for unknown indication
  13. VRAYLAR [Concomitant]
     Active Substance: CARIPRAZINE
     Indication: Product used for unknown indication

REACTIONS (8)
  - Muscle strain [Unknown]
  - Energy increased [Unknown]
  - Mania [Unknown]
  - Paraesthesia [Unknown]
  - Diarrhoea [Recovered/Resolved]
  - Pain [Unknown]
  - Drug interaction [Unknown]
  - Terminal insomnia [Unknown]

NARRATIVE: CASE EVENT DATE: 20190324
